FAERS Safety Report 7225686-8 (Version None)
Quarter: 2011Q1

REPORT INFORMATION
  Report Type: 
  Country: None (occurrence: None)
  Receive Date: 20110113
  Receipt Date: 20110107
  Transmission Date: 20110831
  Serious: Yes (Other)
  Sender: FDA-Public Use
  Company Number: ES-BRISTOL-MYERS SQUIBB COMPANY-15480601

PATIENT
  Age: 60 Year
  Sex: Female

DRUGS (10)
  1. FENTANYL-100 [Concomitant]
     Indication: ANALGESIC THERAPY
     Dosage: ALSO 25MCG 1 IN 72 HR
     Route: 061
     Dates: start: 20070608
  2. DICLOFENAC SODIUM [Concomitant]
     Indication: PAIN MANAGEMENT
     Dosage: 200MG FORM:SUPPOSITORY
     Dates: start: 20070608
  3. CISPLATIN [Concomitant]
     Indication: HEAD AND NECK CANCER
     Dosage: 3 DOSES ON DAYS 1,22 AND 43
  4. MORPHINE [Concomitant]
     Indication: ANALGESIC THERAPY
     Dosage: ALSO 2.5MG/4 HR
     Route: 048
     Dates: start: 20070608
  5. ERBITUX [Suspect]
     Indication: HEAD AND NECK CANCER
     Dosage: ALSO 400MG/M2 INTERRUPTED FOR 3WK,RESTARTED ON MAR08
     Dates: end: 20080527
  6. FLUOROURACIL [Suspect]
     Indication: HEAD AND NECK CANCER
     Dosage: CONTINUOUS INF FOR 4D
     Dates: start: 20070701
  7. GABAPENTIN [Concomitant]
     Indication: PAIN MANAGEMENT
     Dosage: 900MG
     Route: 048
  8. CARBOPLATIN [Suspect]
     Indication: HEAD AND NECK CANCER
     Dosage: 21DAY CYCLES
     Dates: start: 20070701
  9. FENTANYL-100 [Concomitant]
     Indication: PAIN MANAGEMENT
     Dosage: ALSO 25MCG 1 IN 72 HR
     Route: 061
     Dates: start: 20070608
  10. MORPHINE [Concomitant]
     Indication: PAIN MANAGEMENT
     Dosage: ALSO 2.5MG/4 HR
     Route: 048
     Dates: start: 20070608

REACTIONS (8)
  - VOMITING [None]
  - ANAEMIA [None]
  - NAUSEA [None]
  - NEUTROPENIA [None]
  - MUCOSAL INFLAMMATION [None]
  - DERMATITIS ACNEIFORM [None]
  - DECREASED APPETITE [None]
  - ASTHENIA [None]
